FAERS Safety Report 5395983-X (Version None)
Quarter: 2007Q3

REPORT INFORMATION
  Report Type: 
  Country: None (occurrence: None)
  Receive Date: 20070724
  Receipt Date: 20070712
  Transmission Date: 20080115
  Serious: Yes (Hospitalization)
  Sender: FDA-Public Use
  Company Number: US-PFIZER INC-2007058106

PATIENT
  Sex: Male
  Weight: 55.3 kg

DRUGS (1)
  1. CELEBREX [Suspect]
     Indication: ARTHRALGIA
     Dates: start: 20020101, end: 20050101

REACTIONS (3)
  - ARTHRITIS [None]
  - CARDIAC DISORDER [None]
  - MYOCARDIAL INFARCTION [None]
